FAERS Safety Report 18929675 (Version 3)
Quarter: 2022Q4

REPORT INFORMATION
  Report Type: Spontaneous
  Country: US (occurrence: US)
  Receive Date: 20210223
  Receipt Date: 20221201
  Transmission Date: 20230113
  Serious: No
  Sender: FDA-Public Use
  Company Number: US-NOVARTISPH-NVSC2021US037779

PATIENT
  Sex: Female

DRUGS (6)
  1. AZITHROMYCIN [Suspect]
     Active Substance: AZITHROMYCIN
     Indication: COVID-19
     Dosage: 500 MG FOR THE FIRST DAY
     Route: 065
     Dates: start: 20200329
  2. AZITHROMYCIN [Suspect]
     Active Substance: AZITHROMYCIN
     Dosage: OTHER 2 DAYS 250 MG DAILY
     Route: 048
     Dates: start: 20200330, end: 20200331
  3. AZITHROMYCIN [Suspect]
     Active Substance: AZITHROMYCIN
     Dosage: 500 MG UNK
     Route: 065
     Dates: start: 20200401
  4. AZITHROMYCIN [Suspect]
     Active Substance: AZITHROMYCIN
     Dosage: 250 MG DAILY
     Route: 065
  5. HYDROXYCHLOROQUINE [Suspect]
     Active Substance: HYDROXYCHLOROQUINE
     Indication: COVID-19
     Dosage: 400 MG, QD
     Route: 065
     Dates: start: 20200402
  6. MAGNESIUM [Suspect]
     Active Substance: MAGNESIUM
     Indication: Electrocardiogram QT prolonged
     Dosage: 1 G /100ML NS ONE DOSE
     Route: 065

REACTIONS (1)
  - Maternal exposure during pregnancy [Unknown]
